FAERS Safety Report 6258370-8 (Version None)
Quarter: 2009Q3

REPORT INFORMATION
  Report Type: 
  Country: None (occurrence: None)
  Receive Date: 20090707
  Receipt Date: 20090625
  Transmission Date: 20100115
  Serious: Yes (Other)
  Sender: FDA-Public Use
  Company Number: GB-ELI_LILLY_AND_COMPANY-GB200906006023

PATIENT
  Age: 34 Year
  Sex: Male

DRUGS (5)
  1. OLANZAPINE [Suspect]
     Indication: PSYCHOTIC DISORDER
     Dosage: 20 MG, UNK
     Route: 048
     Dates: start: 20090512, end: 20090501
  2. DIAZEPAM [Concomitant]
     Dosage: 5 MG, UNK
     Route: 048
  3. METHADONE [Concomitant]
     Indication: DRUG DEPENDENCE
     Dosage: 30 MG, UNK
     Route: 048
  4. ALBUTEROL [Concomitant]
     Indication: WHEEZING
     Dosage: 2 D/F, AS NEEDED
     Route: 055
  5. TEMAZEPAM [Concomitant]
     Indication: INSOMNIA
     Dosage: 10 MG, UNK

REACTIONS (3)
  - ATAXIA [None]
  - BLOOD GLUCOSE DECREASED [None]
  - DYSARTHRIA [None]
